FAERS Safety Report 7379006-9 (Version None)
Quarter: 2011Q1

REPORT INFORMATION
  Report Type: 
  Country: None (occurrence: None)
  Receive Date: 20110328
  Receipt Date: 20110303
  Transmission Date: 20110831
  Serious: No
  Sender: FDA-Public Use
  Company Number: US-B.I. PHARMACEUTICALS,INC./RIDGEFIELD-2011-BP-06359BP

PATIENT
  Sex: Female

DRUGS (5)
  1. TEMAZEPAM [Concomitant]
     Indication: INSOMNIA
     Dosage: 15 MG
  2. ASPIRIN [Concomitant]
     Indication: PROPHYLAXIS
  3. SPIRIVA [Suspect]
     Indication: CHRONIC OBSTRUCTIVE PULMONARY DISEASE
     Dosage: 18 MCG
     Route: 055
     Dates: start: 20090101
  4. LORAZEPAM [Concomitant]
     Indication: ANXIETY
     Dosage: 1 MG
  5. PROPRANOLOL [Concomitant]
     Indication: HYPERTENSION
     Dosage: 10 MG

REACTIONS (2)
  - DRUG INEFFECTIVE [None]
  - DRY EYE [None]
